FAERS Safety Report 7686771-X (Version None)
Quarter: 2011Q3

REPORT INFORMATION
  Report Type: 
  Country: None (occurrence: None)
  Receive Date: 20110816
  Receipt Date: 20110804
  Transmission Date: 20111222
  Serious: Yes (Hospitalization)
  Sender: FDA-Public Use
  Company Number: DE-UCBSA-019822

PATIENT
  Sex: Female
  Weight: 94 kg

DRUGS (4)
  1. METHOTREXATE [Concomitant]
     Indication: RHEUMATOID ARTHRITIS
     Route: 048
     Dates: start: 20090101, end: 20100831
  2. CIMZIA [Suspect]
     Indication: RHEUMATOID ARTHRITIS
     Dosage: UNKNOWN DOSE, RECEIVED ONE OR TWO INJECTIONS
     Route: 058
  3. ARCOXIA [Concomitant]
     Indication: RHEUMATOID ARTHRITIS
     Dosage: 90 MG/DAY
     Route: 048
     Dates: start: 20090101, end: 20100831
  4. PREDNISOLONE [Concomitant]
     Indication: RHEUMATOID ARTHRITIS
     Dosage: 2.5 MG/DAY
     Route: 048
     Dates: start: 20070101

REACTIONS (3)
  - PREGNANCY [None]
  - RHEUMATOID ARTHRITIS [None]
  - PREMATURE DELIVERY [None]
